FAERS Safety Report 6057044-6 (Version None)
Quarter: 2009Q1

REPORT INFORMATION
  Report Type: 
  Country: None (occurrence: None)
  Receive Date: 20090129
  Receipt Date: 20090121
  Transmission Date: 20090719
  Serious: Yes (Other)
  Sender: FDA-Public Use
  Company Number: NL-TEVA-184271ISR

PATIENT
  Sex: Male

DRUGS (5)
  1. METHOTREXATE [Suspect]
     Indication: RHEUMATOID ARTHRITIS
     Dates: start: 20010801, end: 20080801
  2. RISEDRONATE SODIUM [Concomitant]
     Dates: start: 20010801
  3. PREDNISONE [Concomitant]
  4. CALCIUM CARBONATE [Concomitant]
     Dates: start: 20010801
  5. FOLIC ACID [Concomitant]

REACTIONS (1)
  - POLYNEUROPATHY [None]
